FAERS Safety Report 8617636-4 (Version None)
Quarter: 2012Q3

REPORT INFORMATION
  Report Type: 
  Country: None (occurrence: None)
  Receive Date: 20120824
  Receipt Date: 20120206
  Transmission Date: 20120928
  Serious: No
  Sender: FDA-Public Use
  Company Number: US-ASTRAZENECA-2011SE75174

PATIENT
  Age: 18517 Day
  Sex: Female
  Weight: 78.5 kg

DRUGS (8)
  1. SYMBICORT [Suspect]
     Route: 055
  2. SYMBICORT [Suspect]
     Route: 055
  3. SYMBICORT [Suspect]
     Indication: COUGH
     Dosage: 160/ 4.5 MCG  DAILY
     Route: 055
     Dates: start: 20111201, end: 20111207
  4. SYMBICORT [Suspect]
     Route: 055
  5. SYMBICORT [Suspect]
     Route: 055
  6. SYMBICORT [Suspect]
     Indication: WHEEZING
     Dosage: 160/ 4.5 MCG  DAILY
     Route: 055
     Dates: start: 20111201, end: 20111207
  7. SYMBICORT [Suspect]
     Route: 055
  8. SYMBICORT [Suspect]
     Route: 055

REACTIONS (3)
  - OFF LABEL USE [None]
  - URTICARIA [None]
  - PRURITUS [None]
